FAERS Safety Report 6987825-3 (Version None)
Quarter: 2010Q3

REPORT INFORMATION
  Report Type: 
  Country: None (occurrence: None)
  Receive Date: 20100830
  Receipt Date: 20090902
  Transmission Date: 20110219
  Serious: Yes (Hospitalization)
  Sender: FDA-Public Use
  Company Number: CIP09002475

PATIENT
  Age: 61 Year
  Sex: Male
  Weight: 90.7 kg

DRUGS (6)
  1. ASACOL [Suspect]
     Indication: DIARRHOEA
     Dosage: ORAL
     Route: 048
     Dates: start: 20071201
  2. LIALDA [Suspect]
     Indication: CROHN'S DISEASE
     Dosage: 3600 MG, DAILY, ORAL ; 1200 MG, 3/DAY, ORAL
     Route: 048
     Dates: start: 20071101, end: 20071201
  3. LIALDA [Suspect]
     Indication: CROHN'S DISEASE
     Dosage: 3600 MG, DAILY, ORAL ; 1200 MG, 3/DAY, ORAL
     Route: 048
     Dates: start: 20090801
  4. REMICADE [Suspect]
     Indication: ARTHRITIS
     Dosage: IV NOS
     Route: 042
     Dates: start: 20071201
  5. CELEBREX [Concomitant]
  6. PAROXETINE HCL [Concomitant]

REACTIONS (1)
  - PANCREATITIS [None]
